FAERS Safety Report 8760819 (Version 1)
Quarter: 2012Q4

REPORT INFORMATION
  Report Type: 
  Country: US (occurrence: US)
  Receive Date: 20120830
  Receipt Date: 20120830
  Transmission Date: 20130627
  Serious: No
  Sender: FDA-Public Use
  Company Number: US-BAYER-2012-089680

PATIENT
  Sex: Female

DRUGS (1)
  1. MIRENA [Suspect]
     Indication: CONTRACEPTION
     Dosage: 20 mcg/24hr, UNK
     Route: 015
     Dates: start: 20120306

REACTIONS (7)
  - Pain [None]
  - Abdominal pain [None]
  - Procedural nausea [None]
  - Pain [None]
  - Ovarian cyst [None]
  - Amenorrhoea [None]
  - Device difficult to use [None]
